FAERS Safety Report 10015285 (Version 3)
Quarter: 2014Q2

REPORT INFORMATION
  Report Type: Spontaneous
  Country: US (occurrence: US)
  Receive Date: 20140317
  Receipt Date: 20140529
  Transmission Date: 20141212
  Serious: No
  Sender: FDA-Public Use
  Company Number: US-PFIZER INC-2014072206

PATIENT
  Age: 69 Year
  Sex: Female

DRUGS (2)
  1. XALKORI [Suspect]
     Indication: LUNG NEOPLASM MALIGNANT
     Dosage: 250 MG, 2X/DAY
     Route: 048
     Dates: start: 20131106
  2. XALKORI [Suspect]
     Dosage: UNK
     Dates: end: 20140331

REACTIONS (4)
  - Disease progression [Unknown]
  - Lung neoplasm malignant [Unknown]
  - Nausea [Unknown]
  - Visual impairment [Unknown]
